FAERS Safety Report 6884843-0 (Version None)
Quarter: 2010Q3

REPORT INFORMATION
  Report Type: 
  Country: None (occurrence: None)
  Receive Date: 20100729
  Receipt Date: 20070925
  Transmission Date: 20110219
  Serious: No
  Sender: FDA-Public Use
  Company Number: US-PFIZER INC-2007080554

PATIENT
  Sex: Male

DRUGS (6)
  1. CELEBREX [Suspect]
     Indication: OSTEOARTHRITIS
  2. PHENOBARBITAL [Concomitant]
  3. CYANOCOBALAMIN [Concomitant]
  4. CLORAZEPATE DIPOTASSIUM [Concomitant]
  5. DOCUSATE [Concomitant]
  6. LEVOTHYROXINE SODIUM [Concomitant]

REACTIONS (2)
  - BODY HEIGHT DECREASED [None]
  - JOINT DISLOCATION [None]
